FAERS Safety Report 10443762 (Version 1)
Quarter: 2014Q3

REPORT INFORMATION
  Report Type: Spontaneous
  Country: US (occurrence: US)
  Receive Date: 20140910
  Receipt Date: 20140910
  Transmission Date: 20150326
  Serious: No
  Sender: FDA-Public Use
  Company Number: US-TEVA-497277USA

PATIENT
  Sex: Female

DRUGS (1)
  1. IRBESARTAN. [Suspect]
     Active Substance: IRBESARTAN
     Dosage: 150 MILLIGRAM DAILY;

REACTIONS (4)
  - Confusional state [Unknown]
  - Nervousness [Unknown]
  - Anxiety [Unknown]
  - Adverse event [Unknown]
